FAERS Safety Report 11469602 (Version 1)
Quarter: 2015Q3

REPORT INFORMATION
  Report Type: Spontaneous
  Country: BR (occurrence: BR)
  Receive Date: 20150908
  Receipt Date: 20150908
  Transmission Date: 20151125
  Serious: Yes (Other)
  Sender: FDA-Public Use
  Company Number: BR-PFIZER INC-2013347325

PATIENT
  Age: 67 Year
  Sex: Female

DRUGS (2)
  1. PREMARIN [Suspect]
     Active Substance: ESTROGENS, CONJUGATED
     Indication: HORMONE REPLACEMENT THERAPY
     Dosage: UNK
     Dates: start: 19961205
  2. IMEDEEN RADIANT COMPLEXION [Suspect]
     Active Substance: COSMETICS
     Dosage: 2 TABLETS, DAILY
     Route: 048

REACTIONS (8)
  - Weight bearing difficulty [Unknown]
  - Influenza [Not Recovered/Not Resolved]
  - Spinal column stenosis [None]
  - Nephrolithiasis [Unknown]
  - Intervertebral disc compression [Not Recovered/Not Resolved]
  - Spinal pain [Unknown]
  - Rheumatic disorder [Unknown]
  - Drug effect incomplete [Unknown]
